FAERS Safety Report 4911296-1 (Version None)
Quarter: 2006Q1

REPORT INFORMATION
  Report Type: 
  Country: None (occurrence: None)
  Receive Date: 20060113
  Receipt Date: 20050720
  Transmission Date: 20060701
  Serious: Yes (Other)
  Sender: FDA-Public Use
  Company Number: HQWYE404422JUL05

PATIENT
  Age: 57 Year
  Sex: Female

DRUGS (2)
  1. PREMPRO [Suspect]
     Indication: DYSFUNCTIONAL UTERINE BLEEDING
  2. PREMPRO [Suspect]
     Indication: MOOD SWINGS

REACTIONS (1)
  - BREAST CANCER [None]
